FAERS Safety Report 8987688 (Version 3)
Quarter: 2013Q2

REPORT INFORMATION
  Report Type: Spontaneous
  Country: US (occurrence: US)
  Receive Date: 20121227
  Receipt Date: 20130424
  Transmission Date: 20140414
  Serious: Yes (Hospitalization, Other)
  Sender: FDA-Public Use
  Company Number: US-PFIZER INC-2012326385

PATIENT
  Age: 50 Year
  Sex: Female
  Weight: 75 kg

DRUGS (16)
  1. DILANTIN [Suspect]
     Indication: CONVULSION
     Dosage: 100 MG, UNK
     Route: 048
     Dates: start: 20111121
  2. DILANTIN [Suspect]
     Dosage: 200MG EVERY MORNING AND 300MG AT BED TIME
     Route: 048
     Dates: start: 20111226, end: 20111228
  3. NEURONTIN [Concomitant]
     Dosage: 400 MG, 3X/DAY
     Route: 048
  4. TOPAMAX [Concomitant]
     Dosage: 50 MG, 2X/DAY
     Route: 048
  5. HYDROCODONE [Concomitant]
     Dosage: 7.5 MG, EVERY 6 HOURS
     Route: 048
  6. FLEXERIL [Concomitant]
     Dosage: 10 MG, 3X/DAY
     Route: 048
  7. ZOLOFT [Concomitant]
     Dosage: 100 MG, 1X/DAY
     Route: 048
  8. MOBIC [Concomitant]
     Dosage: 15 MG, 1X/DAY
     Route: 048
  9. XANAX [Concomitant]
     Dosage: 1 MG, 2X/DAY
     Route: 048
  10. ALPRAZOLAM [Concomitant]
     Dosage: 1 MG, UNK
     Dates: start: 20110923
  11. SERTRALINE [Concomitant]
     Dosage: 100 MG, UNK
     Dates: start: 20110202
  12. GABAPENTIN [Concomitant]
     Dosage: 400 MG, UNK
     Dates: start: 20110208
  13. HYDROCODONE W/ACETAMINOPHEN [Concomitant]
     Dosage: 7.5/750 TABLETS
     Dates: start: 20110301
  14. MELOXICAM [Concomitant]
     Dosage: 15 MG, UNK
     Dates: start: 20111114
  15. LEVOFLOXACIN [Concomitant]
     Dosage: 500 MG, UNK
     Dates: start: 20111214
  16. PREDNISONE [Concomitant]
     Dosage: 5 MG, UNK
     Dates: start: 20111214

REACTIONS (1)
  - Stevens-Johnson syndrome [Not Recovered/Not Resolved]
